FAERS Safety Report 6346647-7 (Version None)
Quarter: 2009Q3

REPORT INFORMATION
  Report Type: 
  Country: None (occurrence: None)
  Receive Date: 20090903
  Receipt Date: 20090818
  Transmission Date: 20100115
  Serious: Yes (Other)
  Sender: FDA-Public Use
  Company Number: B0590588A

PATIENT
  Sex: 0

DRUGS (8)
  1. EPIVIR [Suspect]
     Indication: ANTIRETROVIRAL THERAPY
  2. DIDANOSINE [Suspect]
     Indication: DRUG USE FOR UNKNOWN INDICATION
  3. EFAVIRENZ [Suspect]
     Indication: ANTIRETROVIRAL THERAPY
  4. STAVUDINE [Suspect]
     Indication: DRUG USE FOR UNKNOWN INDICATION
  5. SAW PALMETTO (FORMULATION UNKNOWN) (SAW PALMETTO) [Suspect]
     Indication: DRUG USE FOR UNKNOWN INDICATION
  6. LISINOPRIL [Suspect]
     Indication: DRUG USE FOR UNKNOWN INDICATION
  7. SILYMARIN (FORMULATION UNKNOWN) (SILYMARIN) [Suspect]
     Indication: DRUG USE FOR UNKNOWN INDICATION
  8. MULTIVITAMIN [Suspect]
     Indication: DRUG USE FOR UNKNOWN INDICATION

REACTIONS (7)
  - ABNORMAL DREAMS [None]
  - AFFECT LABILITY [None]
  - DRUG INTERACTION [None]
  - GAMMA-GLUTAMYLTRANSFERASE INCREASED [None]
  - HALLUCINATION [None]
  - SUICIDAL IDEATION [None]
  - THINKING ABNORMAL [None]
